FAERS Safety Report 20918549 (Version 2)
Quarter: 2022Q2

REPORT INFORMATION
  Report Type: Other
  Country: FR (occurrence: FR)
  Receive Date: 20220606
  Receipt Date: 20220622
  Transmission Date: 20220721
  Serious: Yes (Other)
  Sender: FDA-Public Use
  Company Number: None

PATIENT
  Age: 70 Year
  Sex: Male
  Weight: 83 kg

DRUGS (2)
  1. FLUDEOXYGLUCOSE F-18 [Suspect]
     Active Substance: FLUDEOXYGLUCOSE F-18
     Indication: Positron emission tomogram
     Dosage: 1 DOSAGE FORM, SINGLE
     Route: 041
     Dates: start: 20220316, end: 20220316
  2. IOMERON [Suspect]
     Active Substance: IOMEPROL
     Indication: Positron emission tomogram
     Dosage: 140 MILLILITER, SINGLE
     Route: 041
     Dates: start: 20220316, end: 20220316

REACTIONS (3)
  - Hypertension [Recovered/Resolved]
  - Tachycardia [Recovered/Resolved]
  - Tremor [Recovered/Resolved]

NARRATIVE: CASE EVENT DATE: 20220316
